FAERS Safety Report 25553309 (Version 1)
Quarter: 2025Q3

REPORT INFORMATION
  Report Type: Report from Study
  Country: CA (occurrence: CA)
  Receive Date: 20250715
  Receipt Date: 20250715
  Transmission Date: 20251020
  Serious: Yes (Hospitalization)
  Sender: ABBVIE
  Company Number: CA-ABBVIE-6353667

PATIENT
  Age: 36 Year
  Sex: Male

DRUGS (1)
  1. RINVOQ [Suspect]
     Active Substance: UPADACITINIB
     Indication: Dermatitis atopic
     Dosage: FROM STRENGTH 30 MILLIGRAM
     Route: 048
     Dates: start: 20250411, end: 20250630

REACTIONS (2)
  - Skin infection [Unknown]
  - Skin infection [Unknown]

NARRATIVE: CASE EVENT DATE: 20250101
